FAERS Safety Report 22191638 (Version 1)
Quarter: 2023Q2

REPORT INFORMATION
  Report Type: Spontaneous
  Country: KW (occurrence: KW)
  Receive Date: 20230410
  Receipt Date: 20230410
  Transmission Date: 20230722
  Serious: Yes (Hospitalization, Other)
  Sender: FDA-Public Use
  Company Number: KW-TAKEDA-2023TUS034783

PATIENT
  Age: 72 Year
  Sex: Female

DRUGS (1)
  1. ADCETRIS [Suspect]
     Active Substance: BRENTUXIMAB VEDOTIN
     Indication: Hodgkin^s disease refractory
     Dosage: 1.8 MILLIGRAM/KILOGRAM
     Route: 065

REACTIONS (2)
  - Renal impairment [Unknown]
  - Hepatic enzyme increased [Unknown]
